FAERS Safety Report 6179732-3 (Version None)
Quarter: 2009Q2

REPORT INFORMATION
  Report Type: 
  Country: None (occurrence: None)
  Receive Date: 20090505
  Receipt Date: 20090423
  Transmission Date: 20091009
  Serious: Yes (Life-Threatening, Hospitalization, Other)
  Sender: FDA-Public Use
  Company Number: DE-JNJFOC-20090301934

PATIENT
  Age: 14 Year
  Sex: Female
  Weight: 54 kg

DRUGS (5)
  1. REMICADE [Suspect]
     Indication: COLITIS ULCERATIVE
  2. AZATHIOPRINE [Concomitant]
     Indication: COLITIS ULCERATIVE
  3. SALOFALK [Concomitant]
     Indication: COLITIS ULCERATIVE
  4. WARFARIN [Concomitant]
     Indication: MITRAL VALVE REPLACEMENT
  5. OMEPRAZOLE [Concomitant]

REACTIONS (2)
  - DUODENITIS HAEMORRHAGIC [None]
  - GASTRITIS HAEMORRHAGIC [None]
